FAERS Safety Report 23130630 (Version 2)
Quarter: 2023Q4

REPORT INFORMATION
  Report Type: Spontaneous
  Country: IT (occurrence: IT)
  Receive Date: 20231031
  Receipt Date: 20231109
  Transmission Date: 20240110
  Serious: Yes (Other)
  Sender: FDA-Public Use
  Company Number: IT-AUROBINDO-AUR-APL-2023-065952

PATIENT
  Age: 6 Year
  Sex: Female

DRUGS (16)
  1. LAMOTRIGINE [Suspect]
     Active Substance: LAMOTRIGINE
     Indication: Partial seizures
     Dosage: UNK
     Route: 065
  2. LAMOTRIGINE [Suspect]
     Active Substance: LAMOTRIGINE
     Indication: Epilepsy
  3. LEVETIRACETAM [Suspect]
     Active Substance: LEVETIRACETAM
     Indication: Partial seizures
     Dosage: UNK
     Route: 065
  4. LEVETIRACETAM [Suspect]
     Active Substance: LEVETIRACETAM
     Indication: Epilepsy
  5. CLOBAZAM [Suspect]
     Active Substance: CLOBAZAM
     Indication: Partial seizures
     Dosage: UNK
     Route: 065
  6. CLOBAZAM [Suspect]
     Active Substance: CLOBAZAM
     Indication: Epilepsy
  7. CARBAMAZEPINE [Suspect]
     Active Substance: CARBAMAZEPINE
     Indication: Epilepsy
     Dosage: UNK
     Route: 065
  8. CARBAMAZEPINE [Suspect]
     Active Substance: CARBAMAZEPINE
     Indication: Partial seizures
  9. CLONAZEPAM [Suspect]
     Active Substance: CLONAZEPAM
     Indication: Epilepsy
     Dosage: UNK
     Route: 065
  10. CLONAZEPAM [Suspect]
     Active Substance: CLONAZEPAM
     Indication: Partial seizures
  11. PERAMPANEL [Suspect]
     Active Substance: PERAMPANEL
     Indication: Epilepsy
     Dosage: UNK
     Route: 065
  12. PERAMPANEL [Suspect]
     Active Substance: PERAMPANEL
     Indication: Partial seizures
  13. PHENOBARBITAL [Suspect]
     Active Substance: PHENOBARBITAL
     Indication: Epilepsy
     Dosage: UNK
     Route: 065
  14. PHENOBARBITAL [Suspect]
     Active Substance: PHENOBARBITAL
     Indication: Partial seizures
  15. ZONISAMIDE [Suspect]
     Active Substance: ZONISAMIDE
     Indication: Epilepsy
     Dosage: UNK
     Route: 065
  16. ZONISAMIDE [Suspect]
     Active Substance: ZONISAMIDE
     Indication: Partial seizures

REACTIONS (2)
  - Drug ineffective [Unknown]
  - Drug resistance [Unknown]
